FAERS Safety Report 4962905-2 (Version None)
Quarter: 2006Q2

REPORT INFORMATION
  Report Type: 
  Country: None (occurrence: None)
  Receive Date: 20060405
  Receipt Date: 20060321
  Transmission Date: 20061013
  Serious: Yes (Death)
  Sender: FDA-Public Use
  Company Number: GBWYE494821MAR06

PATIENT
  Age: 53 Year
  Sex: Male

DRUGS (2)
  1. ENBREL [Suspect]
     Indication: DRUG USE FOR UNKNOWN INDICATION
     Dosage: UNKNOWN
     Route: 058
  2. METHOTREXATE [Concomitant]
     Dosage: UNKNOWN
     Route: 048

REACTIONS (2)
  - PNEUMONIA PNEUMOCOCCAL [None]
  - SEPTIC SHOCK [None]
